FAERS Safety Report 12420492 (Version 2)
Quarter: 2016Q2

REPORT INFORMATION
  Report Type: Spontaneous
  Country: US (occurrence: US)
  Receive Date: 20160531
  Receipt Date: 20160629
  Transmission Date: 20160815
  Serious: No
  Sender: FDA-Public Use
  Company Number: US-PFIZER INC-2016261310

PATIENT
  Age: 85 Year
  Sex: Male

DRUGS (8)
  1. ALBUTEROL. [Concomitant]
     Active Substance: ALBUTEROL
     Indication: BLOOD PRESSURE MEASUREMENT
     Dosage: 200 MG, 2X/DAY
  2. XANAX [Suspect]
     Active Substance: ALPRAZOLAM
     Indication: HYPERTENSION
     Dosage: 3 TABLETS PER DAY 0.25 MG
     Dates: start: 2012
  3. AMLODIPINE BESYLATE. [Concomitant]
     Active Substance: AMLODIPINE BESYLATE
     Indication: BLOOD PRESSURE MEASUREMENT
     Dosage: 2.5 MG, 1X/DAY
  4. VALSARTAN HCTZ [Concomitant]
     Active Substance: HYDROCHLOROTHIAZIDE\VALSARTAN
     Indication: BLOOD PRESSURE MEASUREMENT
     Dosage: UNK, 1X/DAY (VALSARTAN 320 MG HCTZ 12.5 MG)
  5. SIMVASTATIN. [Concomitant]
     Active Substance: SIMVASTATIN
     Indication: BLOOD CHOLESTEROL
     Dosage: 40 MG, ALTERNATE DAY (HALF SIMVASTATIN 40 MG EVERY OTHER DAY)
  6. XANAX [Suspect]
     Active Substance: ALPRAZOLAM
     Dosage: CURRENTLY 1/2 TABLETS
  7. SIMVASTATIN. [Concomitant]
     Active Substance: SIMVASTATIN
     Indication: BLOOD PRESSURE MEASUREMENT
  8. XANAX [Suspect]
     Active Substance: ALPRAZOLAM
     Indication: ANXIETY
     Dosage: ORIGINALLY UP TO 3 TABLETS PER DAY 0.25 MG
     Dates: end: 2012

REACTIONS (2)
  - Salivary hypersecretion [Not Recovered/Not Resolved]
  - Rhinorrhoea [Not Recovered/Not Resolved]

NARRATIVE: CASE EVENT DATE: 2015
